FAERS Safety Report 13539237 (Version 1)
Quarter: 2017Q2

REPORT INFORMATION
  Report Type: Spontaneous
  Country: US (occurrence: US)
  Receive Date: 20170510
  Receipt Date: 20170510
  Transmission Date: 20170830
  Serious: No
  Sender: FDA-Public Use
  Company Number: None

PATIENT
  Age: 63 Year
  Sex: Female

DRUGS (1)
  1. BAUSCH + LOMB ADVANCED EYE RELIEF EYE WASH [Suspect]
     Active Substance: WATER
     Indication: EYE IRRIGATION
     Dates: start: 20170503, end: 20170503

REACTIONS (6)
  - Ocular hyperaemia [None]
  - Reaction to preservatives [None]
  - Eye swelling [None]
  - Skin abrasion [None]
  - Eye pain [None]
  - Product substitution [None]

NARRATIVE: CASE EVENT DATE: 20170503
